FAERS Safety Report 5133008-1 (Version None)
Quarter: 2006Q4

REPORT INFORMATION
  Report Type: 
  Country: None (occurrence: None)
  Receive Date: 20061017
  Receipt Date: 20061011
  Transmission Date: 20070319
  Serious: Yes (Life-Threatening)
  Sender: FDA-Public Use
  Company Number: 2006-148872-NL

PATIENT
  Age: 68 Year
  Sex: Male

DRUGS (5)
  1. MIRTAZAPINE [Suspect]
     Indication: DEPRESSION
     Dosage: 30 MG ORAL
     Route: 048
     Dates: start: 20060401
  2. TRAMADOL HCL [Suspect]
     Indication: POSTOPERATIVE ANALGESIA
     Dosage: 50 MG TID ORAL
     Route: 048
     Dates: start: 20060821, end: 20060825
  3. BENDROFLUAZIDE [Concomitant]
  4. CANDESARTAN [Concomitant]
  5. OXYTETRACYCLINE [Concomitant]

REACTIONS (3)
  - ANXIETY [None]
  - DRUG INTERACTION [None]
  - SUICIDAL IDEATION [None]
